FAERS Safety Report 17494767 (Version 1)
Quarter: 2020Q1

REPORT INFORMATION
  Report Type: Spontaneous
  Country: US (occurrence: US)
  Receive Date: 20200303
  Receipt Date: 20200303
  Transmission Date: 20200409
  Serious: No
  Sender: FDA-Public Use
  Company Number: US-AMNEAL PHARMACEUTICALS-2019-IPXL-01751

PATIENT
  Sex: Male

DRUGS (2)
  1. RYTARY [Suspect]
     Active Substance: CARBIDOPA\LEVODOPA
     Indication: PARKINSON^S DISEASE
     Dosage: 3 DOSAGE FORM, 4 /DAY
     Route: 048
  2. RYTARY [Suspect]
     Active Substance: CARBIDOPA\LEVODOPA
     Dosage: 14 CAPSULES, DAILY (3 CAPSULES AT 7AM AND 10AM, 2 CAPSULES AT 1PM, 4PM, 7PM AND 10PM)
     Route: 048

REACTIONS (3)
  - Inappropriate schedule of product administration [Unknown]
  - Drug intolerance [Unknown]
  - Prescribed overdose [Unknown]
